FAERS Safety Report 9564937 (Version 1)
Quarter: 2013Q3

REPORT INFORMATION
  Report Type: Spontaneous
  Country: SE (occurrence: SE)
  Receive Date: 20130930
  Receipt Date: 20130930
  Transmission Date: 20140515
  Serious: Yes (Other)
  Sender: FDA-Public Use
  Company Number: PHHY2013SE108280

PATIENT
  Age: 89 Year
  Sex: Female

DRUGS (12)
  1. EXELON PATCH [Suspect]
     Indication: SENILE DEMENTIA
     Dosage: 9.5 MG/24 HRS
     Route: 062
     Dates: start: 20101130, end: 20130506
  2. CALCICHEW-D3 SPEARMINT [Concomitant]
  3. CITALOPRAM SANDOZ [Concomitant]
     Dosage: 10 MG, UNK
  4. OMEPRAZOL ACTAVIS [Concomitant]
     Dosage: 20 MG, UNK
  5. FELODIPIN [Concomitant]
  6. ALVEDON [Concomitant]
     Dosage: 50 MG, UNK
  7. ESIDREX [Concomitant]
  8. TENORMIN [Concomitant]
     Dosage: 50 MG, UNK
  9. MORFINE [Concomitant]
     Dosage: 10 MG, UNK (1 TABLET)
  10. DOLCONTIN [Concomitant]
     Dosage: 10 MG, UNK (1+1 TABLET)
  11. OXASCAND [Concomitant]
     Dosage: 5 MG, UNK
  12. TRIATEC [Concomitant]
     Dosage: 5 MG, UNK

REACTIONS (2)
  - Depressed level of consciousness [Recovered/Resolved]
  - Electrocardiogram QT prolonged [Recovered/Resolved]
